FAERS Safety Report 8566716-0 (Version None)
Quarter: 2012Q3

REPORT INFORMATION
  Report Type: 
  Country: None (occurrence: None)
  Receive Date: 20120803
  Receipt Date: 20111025
  Transmission Date: 20120928
  Serious: No
  Sender: FDA-Public Use
  Company Number: US-ABBOTT-11P-163-0867859-00

PATIENT
  Sex: Male
  Weight: 118.04 kg

DRUGS (9)
  1. QUANIPRIL [Concomitant]
     Indication: PRODUCT USED FOR UNKNOWN INDICATION
  2. BLOOD PRESSURE MEDICATION [Concomitant]
     Indication: PRODUCT USED FOR UNKNOWN INDICATION
  3. NIASPAN [Suspect]
     Indication: PRODUCT USED FOR UNKNOWN INDICATION
  4. NIASPAN [Suspect]
     Dosage: TAPERING TO 1000 MG FOR ONE YEAR
     Dates: end: 20110701
  5. LODINE [Concomitant]
     Indication: PRODUCT USED FOR UNKNOWN INDICATION
  6. CARISOPRODAL OR FLEXORIL [Concomitant]
     Indication: PRODUCT USED FOR UNKNOWN INDICATION
  7. DARVOCTE N [Concomitant]
     Indication: PRODUCT USED FOR UNKNOWN INDICATION
  8. ANTIDEPRESSANTS [Concomitant]
     Indication: PRODUCT USED FOR UNKNOWN INDICATION
  9. XANAX [Concomitant]
     Indication: ANXIETY

REACTIONS (3)
  - ERYTHEMA [None]
  - FLUSHING [None]
  - FEELING HOT [None]
